FAERS Safety Report 8954478 (Version 1)
Quarter: 2012Q4

REPORT INFORMATION
  Report Type: 
  Country: US (occurrence: US)
  Receive Date: 20121207
  Receipt Date: 20121207
  Transmission Date: 20130627
  Serious: Yes (Other)
  Sender: FDA-Public Use
  Company Number: US-US-EMD SERONO, INC.-7015245

PATIENT
  Sex: Male

DRUGS (1)
  1. REBIF [Suspect]
     Indication: MULTIPLE SCLEROSIS
     Route: 058
     Dates: start: 20090828

REACTIONS (6)
  - Diabetes mellitus [Recovered/Resolved]
  - Paraesthesia [Unknown]
  - Back pain [Unknown]
  - Pollakiuria [Unknown]
  - Pain [Unknown]
  - Muscle spasticity [Unknown]
